FAERS Safety Report 6826721-9 (Version None)
Quarter: 2010Q3

REPORT INFORMATION
  Report Type: 
  Country: None (occurrence: None)
  Receive Date: 20100709
  Receipt Date: 20100701
  Transmission Date: 20110219
  Serious: Yes (Hospitalization)
  Sender: FDA-Public Use
  Company Number: GXKR2010IN07335

PATIENT
  Age: 44 Year
  Sex: Female

DRUGS (6)
  1. OFLOXACIN (NGX) [Suspect]
     Indication: ESCHERICHIA INFECTION
     Dosage: 200 MG, BID
     Route: 042
  2. ARTESUNATE [Concomitant]
     Indication: PLASMODIUM FALCIPARUM INFECTION
  3. PROBIOTICS (MICROORGANISMS W/PROBIOTIC ACTION) [Concomitant]
     Indication: DIARRHOEA
  4. RABEPRAZOLE SODIUM [Concomitant]
  5. ALBUTEROL [Concomitant]
  6. DOPAMINE HCL [Concomitant]

REACTIONS (2)
  - LEUKOPENIA [None]
  - WOUND SECRETION [None]
